FAERS Safety Report 7799452 (Version 2)
Quarter: 2012Q4

REPORT INFORMATION
  Report Type: 
  Country: ES (occurrence: ES)
  Receive Date: 20110204
  Receipt Date: 20120912
  Transmission Date: 20130627
  Serious: Yes (Other)
  Sender: FDA-Public Use
  Company Number: ES-JNJFOC-20110107366

PATIENT
  Age: 27 Year
  Sex: Female

DRUGS (4)
  1. REMICADE [Suspect]
     Indication: CROHN^S DISEASE
     Route: 042
     Dates: start: 2007, end: 2009
  2. METHOTREXATE [Concomitant]
  3. METHOTREXATE [Concomitant]
     Dates: start: 2008
  4. METHOTREXATE [Concomitant]
     Dates: start: 2008

REACTIONS (3)
  - Eczema [Recovering/Resolving]
  - Pustular psoriasis [Not Recovered/Not Resolved]
  - Crohn^s disease [Recovering/Resolving]
